FAERS Safety Report 18090127 (Version 1)
Quarter: 2020Q3

REPORT INFORMATION
  Report Type: Spontaneous
  Country: NL (occurrence: NL)
  Receive Date: 20200730
  Receipt Date: 20200730
  Transmission Date: 20201103
  Serious: Yes (Hospitalization)
  Sender: FDA-Public Use
  Company Number: NL-ACCORD-193034

PATIENT
  Age: 57 Year
  Sex: Female
  Weight: 97 kg

DRUGS (8)
  1. PLAQUENIL [Suspect]
     Active Substance: HYDROXYCHLOROQUINE SULFATE
     Indication: SYSTEMIC LUPUS ERYTHEMATOSUS
     Dosage: 1 TIME PER DAY 1 PIECE(S), EXTRA INFO: 200 MG
     Dates: start: 20060101
  2. SULFASALAZINE. [Suspect]
     Active Substance: SULFASALAZINE
     Indication: RHEUMATOID ARTHRITIS
     Dosage: 2 TIMES PER DAY 4 PIECE (S), EXTRA INFO: 500 MG
     Dates: start: 20040101, end: 20160511
  3. PANTOZOL [Concomitant]
     Active Substance: PANTOPRAZOLE SODIUM
     Dosage: 1 TIME PER DAY 1 PIECE(S), EXTRA INFO: 40 MG
     Dates: start: 20040101
  4. BISOPROLOL [Concomitant]
     Active Substance: BISOPROLOL
     Dosage: 1 TIME PER DAY 1 PIECE (S), EXTRA INFO: 10 MG
     Dates: start: 20100101
  5. LISINOPRIL. [Concomitant]
     Active Substance: LISINOPRIL
     Dosage: 1 TIME PER DAY 1 PIECE (S), EXTRA INFO: 10 MG
     Dates: start: 20100101
  6. METHOTREXATE. [Suspect]
     Active Substance: METHOTREXATE
     Indication: RHEUMATOID ARTHRITIS
     Dosage: 1 TIME PER WEEK 1 PIECE(S), EXTRA INFO: 25 MG/WK
     Dates: start: 20040101, end: 20160511
  7. ETANERCEPT [Suspect]
     Active Substance: ETANERCEPT
     Indication: RHEUMATOID ARTHRITIS
     Dosage: 1 TIME PER WEEK 1 PIECE (S), EXTRA INFO: 50 MG
     Dates: start: 20150827
  8. HYDROCHLOROTHIAZIDE/TRIAMTERENE [Concomitant]
     Active Substance: HYDROCHLOROTHIAZIDE\TRIAMTERENE
     Dosage: 1 TIME PER DAY 1 PIECE(S), EXTRA INFO: 50/4
     Dates: start: 20150801

REACTIONS (1)
  - Haemolytic anaemia [Not Recovered/Not Resolved]

NARRATIVE: CASE EVENT DATE: 20160411
